FAERS Safety Report 9181634 (Version 1)
Quarter: 2013Q1

REPORT INFORMATION
  Report Type: Spontaneous
  Country: US (occurrence: None)
  Receive Date: 20130321
  Receipt Date: 20130321
  Transmission Date: 20140127
  Serious: Yes (Other)
  Sender: FDA-Public Use
  Company Number: None

PATIENT
  Sex: Male
  Weight: 74.84 kg

DRUGS (9)
  1. COMPLERA [Suspect]
     Indication: HIV INFECTION
  2. MIRTAZEPINE [Concomitant]
  3. METFORMIN [Concomitant]
  4. GLIPIZIDE [Concomitant]
  5. AVALIDE [Concomitant]
  6. TRICOR [Concomitant]
  7. SINGULAIR [Concomitant]
  8. LIPITOR [Concomitant]
  9. IMODIUM [Concomitant]

REACTIONS (1)
  - Blood creatinine increased [None]
